FAERS Safety Report 12460771 (Version 1)
Quarter: 2016Q2

REPORT INFORMATION
  Report Type: Not Available
  Country: US (occurrence: US)
  Receive Date: 20160613
  Receipt Date: 20160613
  Transmission Date: 20160815
  Serious: Yes (Other)
  Sender: FDA-Public Use
  Company Number: US-ANIPHARMA-2015-US-001376

PATIENT
  Age: 70 Year
  Sex: Female

DRUGS (4)
  1. SPIRONOLACTONE. [Concomitant]
     Active Substance: SPIRONOLACTONE
     Route: 065
  2. PROPRANOLOL 60 MG EXTENDED RELEASE CAPSULES [Suspect]
     Active Substance: PROPRANOLOL HYDROCHLORIDE
     Dosage: ONCE DAILY
     Route: 048
     Dates: start: 201506
  3. ENALAPRIL [Concomitant]
     Active Substance: ENALAPRIL
     Route: 065
  4. LASIX [Concomitant]
     Active Substance: FUROSEMIDE
     Route: 065

REACTIONS (11)
  - Rash [Unknown]
  - Pain of skin [Unknown]
  - Bite [Unknown]
  - Skin burning sensation [Unknown]
  - Pruritus [Unknown]
  - Rash papular [Unknown]
  - Blister [Unknown]
  - Blister rupture [Unknown]
  - Stevens-Johnson syndrome [None]
  - Erythema multiforme [Unknown]
  - Back injury [Unknown]
